FAERS Safety Report 6491211-2 (Version None)
Quarter: 2009Q4

REPORT INFORMATION
  Report Type: 
  Country: None (occurrence: None)
  Receive Date: 20091211
  Receipt Date: 20091130
  Transmission Date: 20100525
  Serious: Yes (Other)
  Sender: FDA-Public Use
  Company Number: PHHY2009JP50914

PATIENT
  Age: 51 Year
  Sex: Male

DRUGS (5)
  1. GLEEVEC [Suspect]
     Indication: GASTROINTESTINAL STROMAL TUMOUR
     Route: 048
  2. GLEEVEC [Suspect]
     Indication: METASTASES TO LIVER
  3. SUTENT [Suspect]
     Dosage: 50 MG, UNK
     Route: 048
  4. SUTENT [Suspect]
     Route: 048
  5. SUTENT [Suspect]
     Dosage: 25 MG, UNK
     Route: 048

REACTIONS (8)
  - FACIAL SPASM [None]
  - GASTROINTESTINAL STROMAL TUMOUR [None]
  - HEPATECTOMY [None]
  - MALIGNANT NEOPLASM PROGRESSION [None]
  - METASTASES TO LIVER [None]
  - NEUTROPHIL COUNT DECREASED [None]
  - PALMAR-PLANTAR ERYTHRODYSAESTHESIA SYNDROME [None]
  - PLATELET COUNT DECREASED [None]
